FAERS Safety Report 9209334 (Version 1)
Quarter: 2013Q1

REPORT INFORMATION
  Report Type: Spontaneous
  Country: US (occurrence: None)
  Receive Date: 20120817
  Receipt Date: 20120817
  Transmission Date: 20140127
  Serious: Yes (Hospitalization)
  Sender: FDA-Public Use
  Company Number: 136188

PATIENT
  Sex: Male
  Weight: 44.45 kg

DRUGS (1)
  1. CYTARABINE [Suspect]
     Indication: ACUTE MYELOID LEUKAEMIA
     Dosage: 15MG/M2 EVERY 12 HOURS TIMES TWELVE DAYS
     Route: 042
     Dates: start: 20120507, end: 20120604

REACTIONS (3)
  - Pneumonia [None]
  - Infection [None]
  - Neutropenia [None]
